FAERS Safety Report 7387119-0 (Version None)
Quarter: 2011Q1

REPORT INFORMATION
  Report Type: 
  Country: None (occurrence: None)
  Receive Date: 20110331
  Receipt Date: 20100322
  Transmission Date: 20110831
  Serious: Yes (Other)
  Sender: FDA-Public Use
  Company Number: A0851698A

PATIENT
  Age: 63 Year
  Sex: Female

DRUGS (2)
  1. IMMUNE GLOBULIN INTRAVENOUS (HUMAN) [Concomitant]
  2. PROMACTA [Suspect]
     Indication: AUTOIMMUNE THROMBOCYTOPENIA
     Route: 048
     Dates: end: 20100728

REACTIONS (5)
  - RESPIRATORY DISORDER [None]
  - ATRIAL FIBRILLATION [None]
  - ADRENAL INSUFFICIENCY [None]
  - SYSTEMIC LUPUS ERYTHEMATOSUS [None]
  - DRUG INEFFECTIVE [None]
